FAERS Safety Report 6443522-4 (Version None)
Quarter: 2009Q4

REPORT INFORMATION
  Report Type: 
  Country: None (occurrence: None)
  Receive Date: 20091117
  Receipt Date: 20091105
  Transmission Date: 20100525
  Serious: Yes (Hospitalization)
  Sender: FDA-Public Use
  Company Number: DE-PFIZER INC-2009275288

PATIENT
  Age: 40 Year
  Sex: Male

DRUGS (3)
  1. LYRICA [Suspect]
     Indication: GENERALISED ANXIETY DISORDER
     Dosage: 300 MG, 1X/DAY
     Route: 048
     Dates: start: 20090401, end: 20090901
  2. GELONIDA [Concomitant]
     Dosage: UNK
  3. LAMICTAL [Concomitant]
     Indication: DEPRESSION
     Dosage: 200 MG, 1X/DAY
     Dates: start: 20090401

REACTIONS (4)
  - DYSARTHRIA [None]
  - PANIC ATTACK [None]
  - TREMOR [None]
  - WITHDRAWAL SYNDROME [None]
